FAERS Safety Report 18032724 (Version 3)
Quarter: 2021Q1

REPORT INFORMATION
  Report Type: Report from Study
  Country: US (occurrence: US)
  Receive Date: 20200716
  Receipt Date: 20210224
  Transmission Date: 20210419
  Serious: No
  Sender: FDA-Public Use
  Company Number: NVSC2020US196778

PATIENT
  Age: 63 Year
  Sex: Male

DRUGS (1)
  1. ENTRESTO [Suspect]
     Active Substance: SACUBITRIL\VALSARTAN
     Indication: PRODUCT USED FOR UNKNOWN INDICATION
     Dosage: 1 DF (49/51 MG), BID
     Route: 048
     Dates: start: 202001

REACTIONS (9)
  - Depression [Unknown]
  - Muscular weakness [Recovering/Resolving]
  - Wrong technique in product usage process [Unknown]
  - Dysstasia [Unknown]
  - Weight increased [Unknown]
  - Arthralgia [Unknown]
  - Asthenia [Unknown]
  - Hypotension [Unknown]
  - Pollakiuria [Unknown]

NARRATIVE: CASE EVENT DATE: 202001
